FAERS Safety Report 18670088 (Version 4)
Quarter: 2021Q1

REPORT INFORMATION
  Report Type: Spontaneous
  Country: BR (occurrence: BR)
  Receive Date: 20201228
  Receipt Date: 20210225
  Transmission Date: 20210419
  Serious: Yes (Other)
  Sender: FDA-Public Use
  Company Number: BR-GLAXOSMITHKLINE-BR2020AMR254804

PATIENT
  Sex: Female

DRUGS (1)
  1. RELVAR ELLIPTA [Suspect]
     Active Substance: FLUTICASONE FUROATE\VILANTEROL TRIFENATATE
     Indication: ASTHMA
     Dosage: 1 PUFF(S), QD 100/25 MCG
     Route: 055
     Dates: start: 2017

REACTIONS (5)
  - Oropharyngeal pain [Recovering/Resolving]
  - Drug ineffective [Unknown]
  - Product complaint [Unknown]
  - Asthmatic crisis [Recovering/Resolving]
  - Back pain [Recovering/Resolving]
